FAERS Safety Report 17606546 (Version 1)
Quarter: 2020Q1

REPORT INFORMATION
  Report Type: Report from Study
  Country: CA (occurrence: CA)
  Receive Date: 20200331
  Receipt Date: 20200331
  Transmission Date: 20200409
  Serious: Yes (Other)
  Sender: FDA-Public Use
  Company Number: CA-SHIRE-CA202011056

PATIENT

DRUGS (2)
  1. HUMAN NORMAL IMMUNOGLOBULIN; LIQUID 20 [Suspect]
     Active Substance: HUMAN IMMUNOGLOBULIN G
     Indication: MYASTHENIA GRAVIS
     Dosage: 27 GRAM, 1X/WEEK
     Route: 058
     Dates: start: 20190408
  2. PREDNISONE. [Concomitant]
     Active Substance: PREDNISONE
     Indication: PRODUCT USED FOR UNKNOWN INDICATION

REACTIONS (6)
  - End stage renal disease [Unknown]
  - Hypercholesterolaemia [Unknown]
  - Asthma [Unknown]
  - Infusion site bruising [Unknown]
  - Incorrect drug administration rate [Unknown]
  - Intentional product use issue [Unknown]
